FAERS Safety Report 17800086 (Version 1)
Quarter: 2020Q2

REPORT INFORMATION
  Report Type: Spontaneous
  Country: US (occurrence: US)
  Receive Date: 20200519
  Receipt Date: 20200519
  Transmission Date: 20200714
  Serious: Yes (Congenital Anomaly, Other)
  Sender: FDA-Public Use
  Company Number: US-AUROBINDO-AUR-APL-2020-025309

PATIENT
  Sex: Female
  Weight: 2.78 kg

DRUGS (1)
  1. GLYBURIDE. [Suspect]
     Active Substance: GLYBURIDE
     Indication: GESTATIONAL DIABETES
     Dosage: UNK
     Route: 064

REACTIONS (6)
  - Macrocephaly [Unknown]
  - Neonatal disorder [Unknown]
  - Aqueductal stenosis [Unknown]
  - Foetal exposure during pregnancy [Unknown]
  - Developmental delay [Unknown]
  - Hydrocephalus [Unknown]
